FAERS Safety Report 10659411 (Version 1)
Quarter: 2014Q4

REPORT INFORMATION
  Report Type: Spontaneous
  Country: US (occurrence: US)
  Receive Date: 20141217
  Receipt Date: 20141217
  Transmission Date: 20150529
  Serious: Yes (Death)
  Sender: FDA-Public Use
  Company Number: US-CELGENEUS-163-20785-13121002

PATIENT
  Age: 92 Year
  Sex: Male

DRUGS (1)
  1. THALOMID [Suspect]
     Active Substance: THALIDOMIDE
     Indication: ARTERIOVENOUS MALFORMATION
     Dosage: 50 MILLIGRAM
     Route: 048
     Dates: start: 201309

REACTIONS (2)
  - Renal failure [Fatal]
  - Hypertension [Fatal]

NARRATIVE: CASE EVENT DATE: 20131104
